FAERS Safety Report 7380777-6 (Version None)
Quarter: 2011Q1

REPORT INFORMATION
  Report Type: 
  Country: None (occurrence: None)
  Receive Date: 20110321
  Receipt Date: 20110314
  Transmission Date: 20110831
  Serious: Yes (Other)
  Sender: FDA-Public Use
  Company Number: 2011MA002410

PATIENT
  Sex: Male

DRUGS (1)
  1. METOCLOPRAMIDE TABLETS USP, 10 MG (PUREPAC) [Suspect]
     Dates: start: 20080501, end: 20100101

REACTIONS (2)
  - TARDIVE DYSKINESIA [None]
  - SEXUAL DYSFUNCTION [None]
